FAERS Safety Report 12270616 (Version 1)
Quarter: 2016Q2

REPORT INFORMATION
  Report Type: Spontaneous
  Country: US (occurrence: None)
  Receive Date: 20160414
  Receipt Date: 20160414
  Transmission Date: 20160815
  Serious: Yes (Other)
  Sender: FDA-Public Use
  Company Number: None

PATIENT
  Age: 41 Year
  Sex: Female
  Weight: 74.84 kg

DRUGS (19)
  1. FENTANYL TRANSDERMAL SYSTEM [Suspect]
     Active Substance: FENTANYL
     Indication: PANCREATITIS CHRONIC
     Dosage: PATCH EVERY 48 HRS APPLIED AS MEDICATED PATCH TO SKIN
     Route: 062
     Dates: start: 20160405, end: 20160408
  2. PHENGRAN [Concomitant]
  3. VITAMIN B12 [Concomitant]
     Active Substance: CYANOCOBALAMIN
  4. VITAMIN C [Concomitant]
     Active Substance: ASCORBIC ACID
  5. PAPAYA ENZYMES [Concomitant]
  6. PEPCID [Concomitant]
     Active Substance: FAMOTIDINE
  7. TOPROL XL [Concomitant]
     Active Substance: METOPROLOL SUCCINATE
  8. MULTI VITAMINS [Concomitant]
  9. DILAUDID [Concomitant]
     Active Substance: HYDROMORPHONE HYDROCHLORIDE
  10. TUMS [Concomitant]
     Active Substance: CALCIUM CARBONATE
  11. FENTANYL TRANSDERMAL SYSTEM [Suspect]
     Active Substance: FENTANYL
     Indication: SPHINCTER OF ODDI DYSFUNCTION
     Dosage: PATCH EVERY 48 HRS APPLIED AS MEDICATED PATCH TO SKIN
     Route: 062
     Dates: start: 20160405, end: 20160408
  12. SIMVISTATIN [Concomitant]
     Active Substance: SIMVASTATIN
  13. ISOSORBIDE. [Concomitant]
     Active Substance: ISOSORBIDE
  14. LOSARTAN. [Concomitant]
     Active Substance: LOSARTAN
  15. LANTUS [Concomitant]
     Active Substance: INSULIN GLARGINE
  16. LOREZAPRAM [Concomitant]
  17. CARAFATE [Concomitant]
     Active Substance: SUCRALFATE
  18. PROTONIX [Concomitant]
     Active Substance: PANTOPRAZOLE SODIUM
  19. CREON [Concomitant]
     Active Substance: PANCRELIPASE AMYLASE\PANCRELIPASE LIPASE\PANCRELIPASE PROTEASE

REACTIONS (4)
  - Heart rate increased [None]
  - Product packaging quantity issue [None]
  - Hypertension [None]
  - Drug withdrawal syndrome [None]

NARRATIVE: CASE EVENT DATE: 20160405
